FAERS Safety Report 25906854 (Version 3)
Quarter: 2025Q4

REPORT INFORMATION
  Report Type: Spontaneous
  Country: JP (occurrence: JP)
  Receive Date: 20251010
  Receipt Date: 20251023
  Transmission Date: 20260118
  Serious: Yes (Hospitalization, Other)
  Sender: SANOFI AVENTIS
  Company Number: JP-MLMSERVICE-20251007-PI663763-00152-2

PATIENT
  Age: 75 Year
  Sex: Male

DRUGS (17)
  1. OXALIPLATIN [Suspect]
     Active Substance: OXALIPLATIN
     Indication: Gastric cancer stage IV
     Dosage: 85 MG/M2, QCY
  2. OXALIPLATIN [Suspect]
     Active Substance: OXALIPLATIN
     Indication: Metastases to peritoneum
  3. OXALIPLATIN [Suspect]
     Active Substance: OXALIPLATIN
     Indication: Metastases to lymph nodes
  4. ZOLBETUXIMAB [Suspect]
     Active Substance: ZOLBETUXIMAB
     Indication: Gastric cancer stage IV
     Dosage: 800 MG/M2, QCY  WAS INITIATED AT AN INITIAL RATE OF 140 MG /M2/HR AND ESCALATED INCREMENTALLY TO A F
  5. ZOLBETUXIMAB [Suspect]
     Active Substance: ZOLBETUXIMAB
     Indication: Metastases to peritoneum
  6. ZOLBETUXIMAB [Suspect]
     Active Substance: ZOLBETUXIMAB
     Indication: Metastases to lymph nodes
  7. LEUCOVORIN [Suspect]
     Active Substance: LEUCOVORIN\LEUCOVORIN CALCIUM
     Indication: Gastric cancer stage IV
     Dosage: 200 MG/M2, QCY
  8. LEUCOVORIN [Suspect]
     Active Substance: LEUCOVORIN\LEUCOVORIN CALCIUM
     Indication: Metastases to peritoneum
  9. LEUCOVORIN [Suspect]
     Active Substance: LEUCOVORIN\LEUCOVORIN CALCIUM
     Indication: Metastases to lymph nodes
  10. FLUOROURACIL [Suspect]
     Active Substance: FLUOROURACIL
     Indication: Gastric cancer stage IV
     Dosage: 2400 MG/M2, QCY
  11. FLUOROURACIL [Suspect]
     Active Substance: FLUOROURACIL
     Indication: Metastases to peritoneum
     Dosage: 400 MG/M2, QCY, BOLUS
  12. FLUOROURACIL [Suspect]
     Active Substance: FLUOROURACIL
     Indication: Metastases to lymph nodes
     Dosage: REDUCED THE CONTINUOUS INFUSION BY 50%
     Route: 041
  13. CHLORPHENIRAMINE [Concomitant]
     Active Substance: CHLORPHENIRAMINE
     Indication: Premedication
     Dosage: UNK
     Route: 042
  14. DEXAMETHASONE [Concomitant]
     Active Substance: DEXAMETHASONE
     Indication: Premedication
     Dosage: UNK
  15. PALONOSETRON [Concomitant]
     Active Substance: PALONOSETRON
     Indication: Premedication
     Dosage: UNK
  16. APREPITANT [Concomitant]
     Active Substance: APREPITANT
     Indication: Premedication
     Dosage: UNK
  17. OLANZAPINE [Concomitant]
     Active Substance: OLANZAPINE
     Indication: Premedication
     Dosage: UNK

REACTIONS (13)
  - Tumour lysis syndrome [Recovered/Resolved]
  - Nausea [Recovered/Resolved]
  - Abdominal pain [Recovered/Resolved]
  - Off label use [Recovered/Resolved]
  - Acute kidney injury [Recovering/Resolving]
  - Hyperkalaemia [Recovering/Resolving]
  - Hyperuricaemia [Recovering/Resolving]
  - Hyperphosphataemia [Recovering/Resolving]
  - Electrolyte imbalance [Recovering/Resolving]
  - Hyperammonaemic encephalopathy [Recovered/Resolved]
  - Mental status changes [Recovered/Resolved]
  - Hyperammonaemia [Recovered/Resolved]
  - Altered state of consciousness [Recovered/Resolved]
